FAERS Safety Report 17290835 (Version 1)
Quarter: 2020Q1

REPORT INFORMATION
  Report Type: Spontaneous
  Country: GB (occurrence: GB)
  Receive Date: 20200121
  Receipt Date: 20200121
  Transmission Date: 20200409
  Serious: Yes (Other)
  Sender: FDA-Public Use
  Company Number: GB-TEVA-2020-GB-1169517

PATIENT
  Age: 77 Year
  Sex: Female

DRUGS (3)
  1. ZOLEDRONIC ACID [Suspect]
     Active Substance: ZOLEDRONIC ACID
     Indication: OSTEOPOROSIS
     Dosage: 5 MILLIGRAM
     Route: 030
     Dates: start: 20190615, end: 20190615
  2. CALCIUM [Concomitant]
     Active Substance: CALCIUM
  3. LEVOTHYROXINE. [Concomitant]
     Active Substance: LEVOTHYROXINE

REACTIONS (4)
  - Infusion site swelling [Unknown]
  - Incorrect route of product administration [Unknown]
  - Arthralgia [Recovered/Resolved with Sequelae]
  - Myalgia [Recovered/Resolved with Sequelae]

NARRATIVE: CASE EVENT DATE: 20190615
